FAERS Safety Report 6275345-3 (Version None)
Quarter: 2009Q3

REPORT INFORMATION
  Report Type: 
  Country: None (occurrence: None)
  Receive Date: 20090721
  Receipt Date: 20090713
  Transmission Date: 20100115
  Serious: Yes (Other)
  Sender: FDA-Public Use
  Company Number: B0584883A

PATIENT
  Sex: Female

DRUGS (6)
  1. SERETIDE DISKUS [Suspect]
     Indication: ASTHMA
     Route: 065
     Dates: start: 20090529, end: 20090619
  2. CEDAX [Concomitant]
  3. LACIDOFIL [Concomitant]
  4. FLUCONAZOLE [Concomitant]
  5. AVAMYS [Concomitant]
  6. SINGULAIR [Concomitant]

REACTIONS (2)
  - DISCOMFORT [None]
  - OEDEMA PERIPHERAL [None]
